FAERS Safety Report 16903812 (Version 1)
Quarter: 2019Q4

REPORT INFORMATION
  Report Type: Spontaneous
  Country: US (occurrence: US)
  Receive Date: 20191009
  Receipt Date: 20191009
  Transmission Date: 20200122
  Serious: No
  Sender: FDA-Public Use
  Company Number: None

PATIENT
  Age: 52 Year
  Sex: Female
  Weight: 150 kg

DRUGS (6)
  1. MENOSENSE DIETARY SUPPLEMENT [Concomitant]
  2. VENLAFAXINE CAPSULE HCL ER 37.5MG [Suspect]
     Active Substance: VENLAFAXINE HYDROCHLORIDE
     Indication: MOOD SWINGS
     Dosage: ?          QUANTITY:1 CAPSULE(S);?
     Route: 048
     Dates: start: 20190817, end: 20190914
  3. VENLAFAXINE CAPSULE HCL ER 37.5MG [Suspect]
     Active Substance: VENLAFAXINE HYDROCHLORIDE
     Indication: MENOPAUSE
     Dosage: ?          QUANTITY:1 CAPSULE(S);?
     Route: 048
     Dates: start: 20190817, end: 20190914
  4. CLONAZEPAM 0.5 MG [Concomitant]
     Active Substance: CLONAZEPAM
  5. OMEGA [Concomitant]
     Active Substance: CONVALLARIA MAJALIS\CRATAEGUS LAEVIGATA LEAF\PROXYPHYLLINE
  6. KRILL OIL EXTRA STRENGTH 500 MG [Concomitant]

REACTIONS (12)
  - Abdominal pain upper [None]
  - Hyperhidrosis [None]
  - Mood altered [None]
  - Agitation [None]
  - Flatulence [None]
  - Irritability [None]
  - Paraesthesia [None]
  - Abnormal behaviour [None]
  - Pruritus [None]
  - Nausea [None]
  - Heart rate irregular [None]
  - Mental status changes [None]

NARRATIVE: CASE EVENT DATE: 20190923
